FAERS Safety Report 8163018-1 (Version None)
Quarter: 2012Q1

REPORT INFORMATION
  Report Type: 
  Country: None (occurrence: None)
  Receive Date: 20120224
  Receipt Date: 20120220
  Transmission Date: 20120608
  Serious: Yes (Life-Threatening, Hospitalization)
  Sender: FDA-Public Use
  Company Number: US-BAYER-2011-084969

PATIENT
  Age: 26 Year
  Sex: Female
  Weight: 52.154 kg

DRUGS (2)
  1. YAZ [Suspect]
     Dosage: UNK
     Route: 048
     Dates: start: 20081201, end: 20090308
  2. CLARITIN-D [Concomitant]
     Route: 048

REACTIONS (9)
  - MYOCARDIAL INFARCTION [None]
  - INJURY [None]
  - CHEST PAIN [None]
  - ANHEDONIA [None]
  - DIZZINESS [None]
  - PAIN [None]
  - CARDIAC VALVE DISEASE [None]
  - EMOTIONAL DISTRESS [None]
  - ANXIETY [None]
